FAERS Safety Report 5011504-5 (Version None)
Quarter: 2006Q2

REPORT INFORMATION
  Report Type: 
  Country: None (occurrence: None)
  Receive Date: 20060524
  Receipt Date: 20060517
  Transmission Date: 20061013
  Serious: Yes (Hospitalization, Other)
  Sender: FDA-Public Use
  Company Number: 200611693GDS

PATIENT
  Age: 64 Year
  Sex: Male
  Weight: 82 kg

DRUGS (29)
  1. SORAFENIB [Suspect]
     Indication: RENAL CELL CARCINOMA STAGE UNSPECIFIED
     Dosage: SEE IMAGE
     Route: 048
     Dates: start: 20050621, end: 20050816
  2. SORAFENIB [Suspect]
     Indication: RENAL CELL CARCINOMA STAGE UNSPECIFIED
     Dosage: SEE IMAGE
     Route: 048
     Dates: start: 20050818, end: 20051018
  3. SORAFENIB [Suspect]
     Indication: RENAL CELL CARCINOMA STAGE UNSPECIFIED
     Dosage: SEE IMAGE
     Route: 048
     Dates: start: 20051020, end: 20051213
  4. SORAFENIB [Suspect]
     Indication: RENAL CELL CARCINOMA STAGE UNSPECIFIED
     Dosage: SEE IMAGE
     Route: 048
     Dates: start: 20051215, end: 20051221
  5. SORAFENIB [Suspect]
     Indication: RENAL CELL CARCINOMA STAGE UNSPECIFIED
     Dosage: SEE IMAGE
     Route: 048
     Dates: start: 20051222, end: 20060214
  6. SORAFENIB [Suspect]
     Indication: RENAL CELL CARCINOMA STAGE UNSPECIFIED
     Dosage: SEE IMAGE
     Route: 048
     Dates: start: 20060214, end: 20060420
  7. SORAFENIB [Suspect]
     Indication: RENAL CELL CARCINOMA STAGE UNSPECIFIED
     Dosage: SEE IMAGE
     Route: 048
     Dates: start: 20050620
  8. SORAFENIB [Suspect]
     Indication: RENAL CELL CARCINOMA STAGE UNSPECIFIED
     Dosage: SEE IMAGE
     Route: 048
     Dates: start: 20050817
  9. SORAFENIB [Suspect]
     Indication: RENAL CELL CARCINOMA STAGE UNSPECIFIED
     Dosage: SEE IMAGE
     Route: 048
     Dates: start: 20051019
  10. SORAFENIB [Suspect]
     Indication: RENAL CELL CARCINOMA STAGE UNSPECIFIED
     Dosage: SEE IMAGE
     Route: 048
     Dates: start: 20051214
  11. SORAFENIB [Suspect]
     Indication: RENAL CELL CARCINOMA STAGE UNSPECIFIED
     Dosage: SEE IMAGE
     Route: 048
     Dates: start: 20060421
  12. SORAFENIB [Suspect]
  13. SORAFENIB [Suspect]
  14. SORAFENIB [Suspect]
  15. BISOCARD [Concomitant]
  16. BLOCARD [Concomitant]
  17. ZOCOR [Concomitant]
  18. GENSULIN [Concomitant]
  19. AMLOPIN [Concomitant]
  20. KREON [Concomitant]
  21. EUTHYROX [Concomitant]
  22. LOPERAMIDE [Concomitant]
  23. SODIUM CHLORIDE [Concomitant]
  24. ARTRESAN [Concomitant]
  25. METIZOL [Concomitant]
  26. KALIPOZ [Concomitant]
  27. ALFADIOL [Concomitant]
  28. ........... [Concomitant]
  29. SPIRONOL [Concomitant]

REACTIONS (9)
  - ANAEMIA [None]
  - BLOOD MAGNESIUM DECREASED [None]
  - BLOOD PHOSPHORUS DECREASED [None]
  - DIABETES MELLITUS [None]
  - DIARRHOEA [None]
  - HYPOCALCAEMIA [None]
  - HYPOTHYROIDISM [None]
  - RENAL FAILURE CHRONIC [None]
  - THYROIDITIS [None]
